FAERS Safety Report 11710107 (Version 1)
Quarter: 2015Q4

REPORT INFORMATION
  Report Type: Spontaneous
  Country: US (occurrence: US)
  Receive Date: 20151104
  Receipt Date: 20151104
  Transmission Date: 20160304
  Serious: No
  Sender: FDA-Public Use
  Company Number: US-ELI_LILLY_AND_COMPANY-US201101006404

PATIENT
  Age: 61 Year
  Sex: Female

DRUGS (2)
  1. FORTEO [Suspect]
     Active Substance: TERIPARATIDE
     Dosage: 20 UG, QD
  2. FORTEO [Suspect]
     Active Substance: TERIPARATIDE
     Indication: OSTEOPOROSIS
     Dosage: 20 UG, DAILY (1/D)
     Dates: start: 20110121

REACTIONS (9)
  - Headache [Recovered/Resolved]
  - Pain [Unknown]
  - Dizziness [Recovered/Resolved]
  - Asthenia [Unknown]
  - Fatigue [Unknown]
  - Arthralgia [Unknown]
  - Myalgia [Unknown]
  - Arthritis [Unknown]
  - Muscular weakness [Unknown]

NARRATIVE: CASE EVENT DATE: 20110122
